FAERS Safety Report 7540168-1 (Version None)
Quarter: 2011Q2

REPORT INFORMATION
  Report Type: 
  Country: None (occurrence: None)
  Receive Date: 20110610
  Receipt Date: 20110527
  Transmission Date: 20111010
  Serious: Yes (Other)
  Sender: FDA-Public Use
  Company Number: US-JNJFOC-20110600200

PATIENT
  Sex: Male

DRUGS (1)
  1. REMICADE [Suspect]
     Indication: PSORIATIC ARTHROPATHY
     Route: 042
     Dates: start: 20080101

REACTIONS (4)
  - MONONUCLEOSIS HETEROPHILE TEST POSITIVE [None]
  - LYMPHADENOPATHY [None]
  - CONDITION AGGRAVATED [None]
  - PUSTULAR PSORIASIS [None]
